FAERS Safety Report 5267884-9 (Version None)
Quarter: 2007Q1

REPORT INFORMATION
  Report Type: 
  Country: None (occurrence: None)
  Receive Date: 20061213
  Receipt Date: 20041116
  Transmission Date: 20070707
  Serious: No
  Sender: FDA-Public Use
  Company Number: 2004UW21965

PATIENT
  Age: 58 Year
  Sex: Male
  Weight: 68.038 kg

DRUGS (7)
  1. IRESSA [Suspect]
     Indication: SQUAMOUS CELL CARCINOMA
     Dosage: 500 MG QD PO
     Route: 048
     Dates: start: 20041001
  2. IRESSA [Suspect]
     Indication: SQUAMOUS CELL CARCINOMA
     Dosage: 250 MG QD PO
     Route: 048
     Dates: start: 20040401, end: 20041001
  3. CELEBREX [Concomitant]
  4. AVANDIA [Concomitant]
  5. ADVIL [Concomitant]
  6. IRON [Concomitant]
  7. VITAMINS [Concomitant]

REACTIONS (1)
  - DISEASE PROGRESSION [None]
